FAERS Safety Report 6832305-9 (Version None)
Quarter: 2010Q3

REPORT INFORMATION
  Report Type: 
  Country: None (occurrence: None)
  Receive Date: 20100712
  Receipt Date: 20100702
  Transmission Date: 20110219
  Serious: Yes (Death, Hospitalization, Other)
  Sender: FDA-Public Use
  Company Number: US-MILLENNIUM PHARMACEUTICALS, INC.-2010-03374

PATIENT
  Age: 50 Year
  Sex: Female

DRUGS (2)
  1. VELCADE [Suspect]
     Indication: SMALL INTESTINE CARCINOMA METASTATIC
  2. VORINOSTAT [Suspect]
     Indication: SMALL INTESTINE CARCINOMA METASTATIC

REACTIONS (1)
  - SMALL INTESTINE CARCINOMA [None]
